FAERS Safety Report 7734877 (Version 3)
Quarter: 2015Q4

REPORT INFORMATION
  Report Type: Spontaneous
  Country: US (occurrence: US)
  Receive Date: 20101223
  Receipt Date: 20151210
  Transmission Date: 20160305
  Serious: Yes (Hospitalization, Other)
  Sender: FDA-Public Use
  Company Number: US-BAYER-2010-003278

PATIENT
  Age: 23 Year
  Sex: Female
  Weight: 84.81 kg

DRUGS (1)
  1. YASMIN [Suspect]
     Active Substance: DROSPIRENONE\ETHINYL ESTRADIOL
     Indication: PRODUCT USED FOR UNKNOWN INDICATION
     Dosage: UNK
     Dates: start: 200708

REACTIONS (4)
  - Cardiovascular disorder [None]
  - Embolism arterial [None]
  - Injury [None]
  - Atrial fibrillation [None]

NARRATIVE: CASE EVENT DATE: 200709
